FAERS Safety Report 5622674-X (Version None)
Quarter: 2008Q1

REPORT INFORMATION
  Report Type: 
  Country: None (occurrence: None)
  Receive Date: 20080208
  Receipt Date: 20080208
  Transmission Date: 20080703
  Serious: Yes (Hospitalization)
  Sender: FDA-Public Use
  Company Number: None

PATIENT
  Age: 31 Year
  Sex: Male
  Weight: 119 kg

DRUGS (1)
  1. SNORE RELIEF THROAT RINSE GSK LOT 37159H6 [Suspect]
     Indication: SNORING
     Dosage: 2 TEASPOONFULS AT BEDTIME ORALLY
     Route: 048
     Dates: start: 20080115, end: 20080201

REACTIONS (3)
  - ABNORMAL BEHAVIOUR [None]
  - ENCEPHALOPATHY [None]
  - RESTLESSNESS [None]
